FAERS Safety Report 5493434-8 (Version None)
Quarter: 2007Q4

REPORT INFORMATION
  Report Type: 
  Country: None (occurrence: None)
  Receive Date: 20071023
  Receipt Date: 20071014
  Transmission Date: 20080405
  Serious: Yes (Other)
  Sender: FDA-Public Use
  Company Number: US-PURDUE-USA_2007_0029685

PATIENT
  Age: 65 Year
  Sex: Male

DRUGS (2)
  1. OXYCONTIN [Suspect]
     Indication: BACK PAIN
     Dosage: 20 MG, TID
  2. PERCOCET [Suspect]
     Indication: BREAKTHROUGH PAIN
     Dosage: UNK, PRN

REACTIONS (9)
  - BACK PAIN [None]
  - CONSTIPATION [None]
  - DEPRESSION [None]
  - DRUG DEPENDENCE [None]
  - DRUG EFFECT DECREASED [None]
  - INADEQUATE ANALGESIA [None]
  - KNEE ARTHROPLASTY [None]
  - MENTAL DISORDER [None]
  - SUICIDAL IDEATION [None]
